FAERS Safety Report 20221323 (Version 3)
Quarter: 2022Q1

REPORT INFORMATION
  Report Type: Spontaneous
  Country: GB (occurrence: GB)
  Receive Date: 20211223
  Receipt Date: 20220204
  Transmission Date: 20220423
  Serious: Yes (Hospitalization)
  Sender: FDA-Public Use
  Company Number: GB-TEVA-2021-GB-1989500

PATIENT
  Age: 63 Year
  Sex: Female

DRUGS (6)
  1. CYCLOSPORINE [Suspect]
     Active Substance: CYCLOSPORINE
     Indication: Immunosuppressant drug therapy
     Route: 065
  2. VANCOMYCIN [Suspect]
     Active Substance: VANCOMYCIN
     Indication: Antibiotic therapy
     Route: 065
  3. MEROPENEM [Suspect]
     Active Substance: MEROPENEM
     Indication: Wound infection
     Route: 042
  4. GENTAMICIN [Suspect]
     Active Substance: GENTAMICIN
     Indication: Wound infection
     Route: 042
  5. TEICOPLANIN [Suspect]
     Active Substance: TEICOPLANIN
     Indication: Wound infection
     Route: 042
  6. CASPOFUNGIN [Concomitant]
     Active Substance: CASPOFUNGIN
     Indication: Candida infection
     Route: 065

REACTIONS (6)
  - Impaired healing [Recovered/Resolved]
  - Wound infection [Recovered/Resolved]
  - Acute kidney injury [Unknown]
  - Drug ineffective [Unknown]
  - Staphylococcal infection [Recovered/Resolved]
  - Septic shock [Recovered/Resolved]
